FAERS Safety Report 18953304 (Version 2)
Quarter: 2021Q2

REPORT INFORMATION
  Report Type: Spontaneous
  Country: US (occurrence: US)
  Receive Date: 20210301
  Receipt Date: 20210408
  Transmission Date: 20210717
  Serious: No
  Sender: FDA-Public Use
  Company Number: US-CELGENEUS-USA-20210206050

PATIENT
  Age: 81 Year
  Sex: Male

DRUGS (2)
  1. REVLIMID [Suspect]
     Active Substance: LENALIDOMIDE
     Indication: PLASMA CELL MYELOMA
     Dosage: 15 MILLIGRAM
     Route: 048
     Dates: start: 20201217
  2. LASIX [Concomitant]
     Active Substance: FUROSEMIDE
     Indication: CARDIAC DISORDER
     Route: 065

REACTIONS (3)
  - Fluid retention [Recovering/Resolving]
  - Fatigue [Recovering/Resolving]
  - Hordeolum [Recovered/Resolved]

NARRATIVE: CASE EVENT DATE: 20210223
